FAERS Safety Report 13180505 (Version 4)
Quarter: 2017Q2

REPORT INFORMATION
  Report Type: Spontaneous
  Country: GB (occurrence: GB)
  Receive Date: 20170202
  Receipt Date: 20170518
  Transmission Date: 20170830
  Serious: Yes (Hospitalization, Other)
  Sender: FDA-Public Use
  Company Number: GB-JNJFOC-20170200484

PATIENT
  Age: 72 Year
  Sex: Female

DRUGS (3)
  1. SALBUTAMOL [Interacting]
     Active Substance: ALBUTEROL
     Indication: ASTHMA
     Route: 055
  2. ITRACONAZOLE. [Suspect]
     Active Substance: ITRACONAZOLE
     Indication: BRONCHOPULMONARY ASPERGILLOSIS ALLERGIC
     Route: 048
  3. SERETIDE [Interacting]
     Active Substance: FLUTICASONE PROPIONATE\SALMETEROL XINAFOATE
     Indication: ASTHMA
     Dosage: DOSE: 1 PUFF, SERETIDE 250 EVOHALER.
     Route: 055

REACTIONS (3)
  - Adrenal insufficiency [Recovering/Resolving]
  - Drug interaction [Recovering/Resolving]
  - Bronchopulmonary aspergillosis [Unknown]
